FAERS Safety Report 22137572 (Version 1)
Quarter: 2023Q1

REPORT INFORMATION
  Report Type: Spontaneous
  Country: CA (occurrence: CA)
  Receive Date: 20230325
  Receipt Date: 20230325
  Transmission Date: 20230417
  Serious: Yes (Other)
  Sender: FDA-Public Use
  Company Number: CA-FreseniusKabi-FK202303697

PATIENT
  Age: 73 Year
  Sex: Male
  Weight: 135 kg

DRUGS (1)
  1. PIPERACILLIN AND TAZOBACTAM [Suspect]
     Active Substance: PIPERACILLIN SODIUM\TAZOBACTAM SODIUM
     Indication: Product used for unknown indication
     Route: 041

REACTIONS (4)
  - White blood cell count increased [Unknown]
  - Drug reaction with eosinophilia and systemic symptoms [Unknown]
  - Eosinophil count increased [Unknown]
  - Rash [Unknown]
